FAERS Safety Report 5189953-4 (Version None)
Quarter: 2006Q4

REPORT INFORMATION
  Report Type: 
  Country: None (occurrence: None)
  Receive Date: 20061218
  Receipt Date: 20061204
  Transmission Date: 20070319
  Serious: Yes (Other)
  Sender: FDA-Public Use
  Company Number: 233556

PATIENT
  Age: 7 Week
  Sex: Male

DRUGS (1)
  1. MABTHERA(RITUXIMAB) CONC FOR SOLUTION FOR INFUSION [Suspect]
     Indication: AUTOIMMUNE THROMBOCYTOPENIA
     Dosage: 375 MG/M2, X2, TRANSPLACENTAL
     Route: 064
     Dates: start: 20060524, end: 20060531

REACTIONS (6)
  - CONGENITAL CYTOMEGALOVIRUS INFECTION [None]
  - CYTOMEGALOVIRUS HEPATITIS [None]
  - DRUG EXPOSURE DURING PREGNANCY [None]
  - MATERNAL CONDITION AFFECTING FOETUS [None]
  - PREMATURE BABY [None]
  - THROMBOCYTOPENIA NEONATAL [None]
